FAERS Safety Report 7234533-X (Version None)
Quarter: 2011Q1

REPORT INFORMATION
  Report Type: 
  Country: None (occurrence: None)
  Receive Date: 20110119
  Receipt Date: 20110117
  Transmission Date: 20110831
  Serious: Yes (Other)
  Sender: FDA-Public Use
  Company Number: US-AMGEN-USASP2011003068

PATIENT

DRUGS (3)
  1. NPLATE [Suspect]
     Indication: THROMBOCYTOPENIA
     Dosage: 68 A?G, UNK
     Dates: start: 20100902, end: 20100915
  2. CORTICOSTEROIDS [Concomitant]
     Dosage: UNK
     Dates: start: 20100820
  3. RITUXIMAB [Concomitant]
     Dosage: UNK
     Dates: start: 20100821

REACTIONS (1)
  - THERAPEUTIC RESPONSE DECREASED [None]
